FAERS Safety Report 6171318-X (Version None)
Quarter: 2009Q2

REPORT INFORMATION
  Report Type: 
  Country: None (occurrence: None)
  Receive Date: 20090429
  Receipt Date: 20090421
  Transmission Date: 20091009
  Serious: Yes (Other)
  Sender: FDA-Public Use
  Company Number: US-BAYER-200918820NA

PATIENT
  Age: 28 Year
  Sex: Female

DRUGS (1)
  1. YAZ [Suspect]
     Indication: CONTRACEPTION
     Route: 048
     Dates: end: 20090401

REACTIONS (5)
  - ALCOHOL INTOLERANCE [None]
  - EYE PRURITUS [None]
  - HYPERSENSITIVITY [None]
  - RASH [None]
  - THROAT TIGHTNESS [None]
